FAERS Safety Report 4596048-7 (Version None)
Quarter: 2005Q1

REPORT INFORMATION
  Report Type: 
  Country: None (occurrence: None)
  Receive Date: 20050225
  Receipt Date: 20050216
  Transmission Date: 20050727
  Serious: Yes (Hospitalization, Other)
  Sender: FDA-Public Use
  Company Number: GBWYE882807JUL04

PATIENT
  Age: 32 Year
  Sex: Female

DRUGS (4)
  1. RAPAMUNE [Suspect]
     Indication: IMMUNOSUPPRESSION
     Dosage: 4 MG 1X PER 1 DAY ORAL
     Route: 048
     Dates: start: 20040426, end: 20040608
  2. MYCOPHENOLATE MOFETIL (MYCOPHENOLATE MOFETIL) [Concomitant]
  3. CORTICOSTEROIDS (CORTICOSTEROIDS) [Concomitant]
  4. SIMULECT [Concomitant]

REACTIONS (3)
  - DRUG LEVEL BELOW THERAPEUTIC [None]
  - KIDNEY TRANSPLANT REJECTION [None]
  - MOUTH ULCERATION [None]
